FAERS Safety Report 11822355 (Version 7)
Quarter: 2018Q1

REPORT INFORMATION
  Report Type: Spontaneous
  Country: US (occurrence: US)
  Receive Date: 20151210
  Receipt Date: 20180208
  Transmission Date: 20180508
  Serious: No
  Sender: FDA-Public Use
  Company Number: US-JNJFOC-20150906029

PATIENT
  Sex: Male

DRUGS (3)
  1. ALLOPURINOL. [Suspect]
     Active Substance: ALLOPURINOL
     Indication: PRODUCT USED FOR UNKNOWN INDICATION
     Route: 065
  2. IMBRUVICA [Suspect]
     Active Substance: IBRUTINIB
     Indication: CHRONIC LYMPHOCYTIC LEUKAEMIA
     Route: 048
     Dates: start: 20150501
  3. IMBRUVICA [Suspect]
     Active Substance: IBRUTINIB
     Indication: CHRONIC LYMPHOCYTIC LEUKAEMIA
     Route: 048
     Dates: start: 201506

REACTIONS (20)
  - Cataract [Unknown]
  - Therapeutic response unexpected [Not Recovered/Not Resolved]
  - Arthralgia [Recovered/Resolved]
  - Neuralgia [Unknown]
  - Hypotension [Recovered/Resolved]
  - Skin fissures [Unknown]
  - Muscle strain [Not Recovered/Not Resolved]
  - Skin discolouration [Unknown]
  - Blister [Not Recovered/Not Resolved]
  - Palpitations [Unknown]
  - Dry skin [Not Recovered/Not Resolved]
  - Nail disorder [Recovered/Resolved]
  - Confusional state [Not Recovered/Not Resolved]
  - Rash [Recovered/Resolved]
  - Fatigue [Unknown]
  - Diarrhoea [Unknown]
  - Insomnia [Recovered/Resolved]
  - Staphylococcal infection [Recovered/Resolved]
  - Hypertension [Not Recovered/Not Resolved]
  - Dizziness [Not Recovered/Not Resolved]

NARRATIVE: CASE EVENT DATE: 2015
